FAERS Safety Report 8055347-7 (Version None)
Quarter: 2011Q4

REPORT INFORMATION
  Report Type: 
  Country: None (occurrence: None)
  Receive Date: 20111213
  Receipt Date: 20111006
  Transmission Date: 20120403
  Serious: Yes (Other)
  Sender: FDA-Public Use
  Company Number: 2011SP047477

PATIENT
  Age: 27 Year
  Sex: Female

DRUGS (2)
  1. SAPHRIS [Suspect]
     Indication: BIPOLAR DISORDER
     Dosage: 5 MG;BID;PO
     Route: 048
     Dates: start: 20110926, end: 20110930
  2. EFFEXOR [Concomitant]

REACTIONS (3)
  - SIMPLE PARTIAL SEIZURES [None]
  - INCORRECT ROUTE OF DRUG ADMINISTRATION [None]
  - WOUND [None]
